FAERS Safety Report 24586602 (Version 3)
Quarter: 2025Q1

REPORT INFORMATION
  Report Type: Spontaneous
  Country: JP (occurrence: JP)
  Receive Date: 20241107
  Receipt Date: 20250114
  Transmission Date: 20250409
  Serious: Yes (Death, Life-Threatening, Hospitalization, Other)
  Sender: AMGEN
  Company Number: JP-KYOWAKIRIN-2024KK024481

PATIENT
  Age: 80 Year
  Sex: Female

DRUGS (33)
  1. PEGFILGRASTIM [Suspect]
     Active Substance: PEGFILGRASTIM
     Indication: Colony stimulating factor therapy
     Dosage: 3.6 MG, SINGLE
     Route: 058
     Dates: start: 20241010, end: 20241010
  2. PACLITAXEL [Suspect]
     Active Substance: PACLITAXEL
     Indication: Fallopian tube cancer stage IV
     Dosage: 80.32 MG, QD
     Route: 065
     Dates: start: 20241010, end: 20241010
  3. PACLITAXEL [Suspect]
     Active Substance: PACLITAXEL
     Dosage: 100 MG, QD
     Route: 065
     Dates: start: 20241010, end: 20241010
  4. CARBOPLATIN [Suspect]
     Active Substance: CARBOPLATIN
     Indication: Fallopian tube cancer stage IV
     Dosage: 310.41 MG, QD
     Route: 065
     Dates: start: 20241010, end: 20241010
  5. SODIUM CHLORIDE [Concomitant]
     Active Substance: SODIUM CHLORIDE
     Indication: Product used for unknown indication
     Dosage: 1 KIT, QD
     Route: 058
     Dates: start: 20241010, end: 20241010
  6. SODIUM CHLORIDE [Concomitant]
     Active Substance: SODIUM CHLORIDE
     Dosage: 1 KIT, QD
     Route: 040
     Dates: start: 20241010, end: 20241010
  7. SODIUM CHLORIDE [Concomitant]
     Active Substance: SODIUM CHLORIDE
     Dosage: 1 KIT, QD
     Route: 041
     Dates: start: 20241016, end: 20241016
  8. SODIUM CHLORIDE [Concomitant]
     Active Substance: SODIUM CHLORIDE
     Dosage: 1 KIT, BID
     Route: 040
     Dates: start: 20241017, end: 20241017
  9. SODIUM CHLORIDE [Concomitant]
     Active Substance: SODIUM CHLORIDE
     Dosage: 1V, BID
     Route: 041
     Dates: start: 20241016, end: 20241016
  10. SODIUM CHLORIDE [Concomitant]
     Active Substance: SODIUM CHLORIDE
     Dosage: 1 KIT, QD
     Route: 065
     Dates: start: 20241017, end: 20241017
  11. YD SOLITA T NO.3 [Concomitant]
     Indication: Product used for unknown indication
     Dosage: 1V, QD
     Route: 041
     Dates: start: 20241010, end: 20241010
  12. DEXAMETHASONE [Concomitant]
     Active Substance: DEXAMETHASONE
     Indication: Product used for unknown indication
     Dosage: 2.5V, QD
     Route: 065
     Dates: start: 20241010, end: 20241010
  13. GASTER [Concomitant]
     Active Substance: FAMOTIDINE
     Indication: Product used for unknown indication
     Dosage: 1A, QD
     Route: 065
     Dates: start: 20241010, end: 20241010
  14. PALONOSETRON [Concomitant]
     Active Substance: PALONOSETRON
     Indication: Product used for unknown indication
     Dosage: 1 BAG, QD
     Route: 041
     Dates: start: 20241010, end: 20241010
  15. FOSNETUPITANT CHLORIDE HYDROCHLORIDE [Concomitant]
     Active Substance: FOSNETUPITANT CHLORIDE HYDROCHLORIDE
     Indication: Product used for unknown indication
     Dosage: 1V, QD
     Route: 065
     Dates: start: 20241010, end: 20241010
  16. ISOTONIC SODIUM CHLORIDE SOLUTION [Concomitant]
     Active Substance: SODIUM CHLORIDE
     Indication: Product used for unknown indication
     Dosage: 1V, QD
     Route: 041
     Dates: start: 20241010, end: 20241010
  17. ISOTONIC SODIUM CHLORIDE SOLUTION [Concomitant]
     Active Substance: SODIUM CHLORIDE
     Dosage: 1V, QD
     Route: 040
     Dates: start: 20241010, end: 20241010
  18. CALCIUM CHLORIDE ANHYDROUS\POTASSIUM CHLORIDE\SODIUM CHLORIDE\SODIUM L [Concomitant]
     Active Substance: CALCIUM CHLORIDE ANHYDROUS\POTASSIUM CHLORIDE\SODIUM CHLORIDE\SODIUM LACTATE
     Indication: Product used for unknown indication
     Dosage: 1V, QD
     Route: 041
     Dates: start: 20241017, end: 20241017
  19. ACETAMINOPHEN [Concomitant]
     Active Substance: ACETAMINOPHEN
     Indication: Product used for unknown indication
     Dosage: 1 BAG, QD
     Route: 041
     Dates: start: 20241016, end: 20241016
  20. CEFEPIME HYDROCHLORIDE [Concomitant]
     Active Substance: CEFEPIME HYDROCHLORIDE
     Indication: Product used for unknown indication
     Dosage: 2 KIT, QD
     Route: 041
     Dates: start: 20241016, end: 20241016
  21. CEFEPIME HYDROCHLORIDE [Concomitant]
     Active Substance: CEFEPIME HYDROCHLORIDE
     Dosage: 2 KIT, BID
     Route: 041
     Dates: start: 20241017, end: 20241017
  22. FLURBIPROFEN AXETIL [Concomitant]
     Active Substance: FLURBIPROFEN AXETIL
     Indication: Product used for unknown indication
     Dosage: 1A, QD
     Route: 041
     Dates: start: 20241016, end: 20241016
  23. HYDROXYZINE HYDROCHLORIDE [Concomitant]
     Active Substance: HYDROXYZINE HYDROCHLORIDE
     Indication: Product used for unknown indication
     Dosage: 1A, QD
     Route: 065
     Dates: start: 20241016, end: 20241016
  24. HALOPERIDOL [Concomitant]
     Active Substance: HALOPERIDOL
     Indication: Product used for unknown indication
     Dosage: 0.5A, QD
     Route: 041
     Dates: start: 20241017, end: 20241017
  25. ANTITHROMBIN III HUMAN [Concomitant]
     Active Substance: ANTITHROMBIN III HUMAN
     Indication: Product used for unknown indication
     Dosage: 1V, QD
     Route: 041
     Dates: start: 20241017, end: 20241017
  26. AUGMENTIN [Concomitant]
     Active Substance: AMOXICILLIN\CLAVULANATE POTASSIUM
     Indication: Product used for unknown indication
     Dosage: 3 TABLETS, TID(30 MINUTES AFTER EACH MEAL, FOR 3 DAYS)
     Route: 048
     Dates: start: 20241015
  27. AMOXICILLIN [Concomitant]
     Active Substance: AMOXICILLIN
     Indication: Product used for unknown indication
     Dosage: 3 TABLETS, TID(30 MINUTES AFTER EACH MEAL, FOR 3 DAYS)
     Route: 048
     Dates: start: 20241015
  28. MIYA-BM [Concomitant]
     Active Substance: CLOSTRIDIUM BUTYRICUM SPORES STRAIN M-55
     Indication: Product used for unknown indication
     Dosage: 3 TABLETS, TID(30 MINUTES AFTER EACH MEAL, FOR 7 DAYS)
     Route: 048
     Dates: start: 20241015
  29. KETOPROFEN [Concomitant]
     Active Substance: KETOPROFEN
     Indication: Product used for unknown indication
     Route: 062
     Dates: start: 20241008
  30. ROSUVASTATIN [Concomitant]
     Active Substance: ROSUVASTATIN
     Indication: Product used for unknown indication
     Dosage: 2 DF, QD(30 MINUTES AFTER DINNER, FOR 60 DAYS )
     Route: 048
     Dates: start: 20241008
  31. HERBALS [Concomitant]
     Active Substance: HERBALS
     Indication: Product used for unknown indication
     Dosage: 3 PACKS, TID(30 MINUTES BEFORE EACH MEAL, FOR 60 DAYS)
     Route: 048
     Dates: start: 20241008
  32. FAMOTIDINE [Concomitant]
     Active Substance: FAMOTIDINE
     Indication: Product used for unknown indication
     Dosage: 2 TABLETS, BID(30 MINUTES AFTER BREAKFAST AND DINNER, FOR 60 DAYS)
     Route: 048
     Dates: start: 20241008
  33. MONTELUKAST SODIUM [Concomitant]
     Active Substance: MONTELUKAST SODIUM
     Indication: Product used for unknown indication
     Dosage: 1 DF, QD(BEFORE BEDTIME, FOR 60 DAYS )
     Route: 048
     Dates: start: 20241008

REACTIONS (6)
  - Drug ineffective [Not Recovered/Not Resolved]
  - Febrile neutropenia [Not Recovered/Not Resolved]
  - Agranulocytosis [Not Recovered/Not Resolved]
  - Myelosuppression [Not Recovered/Not Resolved]
  - Lung disorder [Not Recovered/Not Resolved]
  - Septic shock [Fatal]

NARRATIVE: CASE EVENT DATE: 20241015
